FAERS Safety Report 4779547-4 (Version None)
Quarter: 2005Q3

REPORT INFORMATION
  Report Type: 
  Country: None (occurrence: None)
  Receive Date: 20050923
  Receipt Date: 20050823
  Transmission Date: 20060218
  Serious: Yes (Hospitalization, Other)
  Sender: FDA-Public Use
  Company Number: USA031050084

PATIENT
  Age: 84 Year
  Sex: Female
  Weight: 57 kg

DRUGS (5)
  1. FORTEO [Suspect]
     Indication: OSTEOPOROSIS
     Dosage: 20 UG/1 AT BEDTIME
     Dates: start: 20030423, end: 20041101
  2. LESCOL [Concomitant]
  3. HYZAAR [Concomitant]
  4. VITAMIN [Concomitant]
  5. CALTRATE (CALCIUM CARBONATE) [Concomitant]

REACTIONS (28)
  - ABASIA [None]
  - ANOREXIA [None]
  - ARTHRALGIA [None]
  - ARTHRITIS [None]
  - ASTHENIA [None]
  - BLOOD CALCIUM INCREASED [None]
  - CELLS IN URINE [None]
  - CHOLECYSTITIS INFECTIVE [None]
  - CONDITION AGGRAVATED [None]
  - CONSTIPATION [None]
  - CULTURE URINE POSITIVE [None]
  - CYSTITIS [None]
  - DIZZINESS [None]
  - DRUG INEFFECTIVE [None]
  - DYSURIA [None]
  - FALL [None]
  - FEELING DRUNK [None]
  - GALLBLADDER PAIN [None]
  - HYPOAESTHESIA [None]
  - KIDNEY INFECTION [None]
  - MALAISE [None]
  - MUSCLE SPASMS [None]
  - MUSCLE STRAIN [None]
  - MUSCULAR WEAKNESS [None]
  - NAUSEA [None]
  - PAIN IN EXTREMITY [None]
  - PHARMACEUTICAL PRODUCT COMPLAINT [None]
  - TRANSIENT ISCHAEMIC ATTACK [None]
